FAERS Safety Report 20614186 (Version 1)
Quarter: 2022Q1

REPORT INFORMATION
  Report Type: Report from Study
  Country: US (occurrence: US)
  Receive Date: 20220320
  Receipt Date: 20220320
  Transmission Date: 20220424
  Serious: Yes (Other)
  Sender: FDA-Public Use
  Company Number: US-NOVARTISPH-NVSC2022US061639

PATIENT
  Age: 21 Year
  Sex: Female

DRUGS (1)
  1. DEXAMETHASONE [Suspect]
     Active Substance: DEXAMETHASONE
     Indication: Product used for unknown indication
     Route: 065

REACTIONS (17)
  - Immune thrombocytopenia [Unknown]
  - Haemorrhage [Unknown]
  - Purpura [Unknown]
  - Fatigue [Unknown]
  - Cognitive disorder [Unknown]
  - General physical condition abnormal [Unknown]
  - Asthenia [Unknown]
  - Emotional disorder [Unknown]
  - Depressed mood [Unknown]
  - Insomnia [Unknown]
  - Feeling abnormal [Unknown]
  - Disturbance in attention [Unknown]
  - Contusion [Unknown]
  - Skin discolouration [Unknown]
  - Anxiety [Unknown]
  - Increased appetite [Unknown]
  - Drug ineffective [Unknown]
